FAERS Safety Report 9716906 (Version 3)
Quarter: 2013Q4

REPORT INFORMATION
  Report Type: Report from Study
  Country: US (occurrence: US)
  Receive Date: 20131127
  Receipt Date: 20131218
  Transmission Date: 20140711
  Serious: No
  Sender: FDA-Public Use
  Company Number: US-JNJFOC-20131110266

PATIENT
  Sex: Female

DRUGS (4)
  1. DURAGESIC [Suspect]
     Indication: PRODUCT USED FOR UNKNOWN INDICATION
     Route: 062
     Dates: start: 20000101
  2. FENTANYL TRANSDERMAL SYSTEM [Suspect]
     Indication: PRODUCT USED FOR UNKNOWN INDICATION
     Route: 062
  3. NORCO [Concomitant]
     Indication: INTERVERTEBRAL DISC DISORDER
     Route: 065
  4. NORCO [Concomitant]
     Indication: BREAKTHROUGH PAIN
     Route: 065

REACTIONS (1)
  - Drug dose omission [Unknown]
